FAERS Safety Report 7938268-7 (Version None)
Quarter: 2011Q4

REPORT INFORMATION
  Report Type: 
  Country: None (occurrence: None)
  Receive Date: 20111123
  Receipt Date: 20111116
  Transmission Date: 20120403
  Serious: Yes (Hospitalization, Other)
  Sender: FDA-Public Use
  Company Number: NO-TEVA-309505ISR

PATIENT
  Sex: Female

DRUGS (4)
  1. ENBREL [Suspect]
     Indication: PSORIATIC ARTHROPATHY
     Route: 058
     Dates: start: 20031101, end: 20070301
  2. SIMPONI [Suspect]
     Indication: PSORIATIC ARTHROPATHY
     Route: 058
     Dates: start: 20101021, end: 20110201
  3. TRISEQUENS [Suspect]
     Route: 048
     Dates: end: 20070301
  4. METHOTREXATE [Suspect]
     Dosage: 1.0714 MILLIGRAM; 7,5 MG PER WEEK, PERIODICALLY DURING 1997-2011
     Route: 048
     Dates: start: 19971201, end: 20110101

REACTIONS (1)
  - BREAST CANCER FEMALE [None]
